FAERS Safety Report 7179217-1 (Version None)
Quarter: 2010Q4

REPORT INFORMATION
  Report Type: 
  Country: None (occurrence: None)
  Receive Date: 20101221
  Receipt Date: 20101214
  Transmission Date: 20110411
  Serious: Yes (Other)
  Sender: FDA-Public Use
  Company Number: GB-GENZYME-CAMP-1001207

PATIENT

DRUGS (1)
  1. CAMPATH [Suspect]
     Indication: MUSCULOSKELETAL PAIN
     Dosage: UNK UNK, UNK
     Route: 065

REACTIONS (1)
  - LYMPHOMA [None]
